FAERS Safety Report 24861671 (Version 4)
Quarter: 2025Q2

REPORT INFORMATION
  Report Type: Report from Study
  Country: CN (occurrence: CN)
  Receive Date: 20250120
  Receipt Date: 20250423
  Transmission Date: 20250716
  Serious: Yes (Hospitalization)
  Sender: ABBVIE
  Company Number: CN-JNJFOC-20250132427

PATIENT
  Age: 74 Year
  Sex: Male
  Weight: 70 kg

DRUGS (2)
  1. IBRUTINIB [Suspect]
     Active Substance: IBRUTINIB
     Indication: Chronic lymphocytic leukaemia
     Route: 048
     Dates: start: 20230303, end: 20241225
  2. IBRUTINIB [Suspect]
     Active Substance: IBRUTINIB
     Indication: Chronic lymphocytic leukaemia
     Dosage: LAST ADMIN DATE: 2025
     Route: 048
     Dates: start: 20250101

REACTIONS (1)
  - Deafness unilateral [Recovered/Resolved]

NARRATIVE: CASE EVENT DATE: 20241226
